FAERS Safety Report 13449721 (Version 1)
Quarter: 2017Q2

REPORT INFORMATION
  Report Type: Spontaneous
  Country: US (occurrence: US)
  Receive Date: 20170417
  Receipt Date: 20170417
  Transmission Date: 20170830
  Serious: No
  Sender: FDA-Public Use
  Company Number: US-BANPHARM-20164677

PATIENT
  Age: 56 Year
  Sex: Female
  Weight: 58.97 kg

DRUGS (12)
  1. ALBUTEROL. [Concomitant]
     Active Substance: ALBUTEROL
  2. BACLOFEN. [Concomitant]
     Active Substance: BACLOFEN
  3. PROTRANOLOL [Concomitant]
  4. EPIPEN [Concomitant]
     Active Substance: EPINEPHRINE
  5. XANAX [Concomitant]
     Active Substance: ALPRAZOLAM
  6. PRESERVISRIN [Concomitant]
  7. VOLTAREN [Concomitant]
     Active Substance: DICLOFENAC SODIUM
  8. FAUOXETINE [Concomitant]
  9. FOSAMAX [Concomitant]
     Active Substance: ALENDRONATE SODIUM
  10. ALEVE [Suspect]
     Active Substance: NAPROXEN SODIUM
     Indication: MYALGIA
     Dosage: 1 DF, Q8H,
     Route: 048
     Dates: start: 2015
  11. SYMBICORT [Concomitant]
     Active Substance: BUDESONIDE\FORMOTEROL FUMARATE DIHYDRATE
  12. XANAX [Concomitant]
     Active Substance: ALPRAZOLAM

REACTIONS (1)
  - Incorrect drug administration duration [Not Recovered/Not Resolved]

NARRATIVE: CASE EVENT DATE: 2015
